FAERS Safety Report 24970179 (Version 1)
Quarter: 2025Q1

REPORT INFORMATION
  Report Type: Report from Study
  Country: CL (occurrence: CL)
  Receive Date: 20250214
  Receipt Date: 20250214
  Transmission Date: 20250408
  Serious: Yes (Other)
  Sender: RANBAXY
  Company Number: CL-SUN PHARMACEUTICAL INDUSTRIES LTD-2025RR-494645

PATIENT
  Sex: Female

DRUGS (2)
  1. LEVETIRACETAM [Suspect]
     Active Substance: LEVETIRACETAM
     Indication: Epilepsy
     Dosage: 500 MILLIGRAM, BID
     Route: 065
  2. ACETAZOLAMIDE [Suspect]
     Active Substance: ACETAZOLAMIDE
     Indication: Epilepsy
     Dosage: 125 MILLIGRAM, BID
     Route: 065

REACTIONS (4)
  - Abnormal behaviour [Unknown]
  - Therapeutic product effect incomplete [Unknown]
  - Irritability [Unknown]
  - Metabolic acidosis [Unknown]
